FAERS Safety Report 4750745-9 (Version None)
Quarter: 2005Q3

REPORT INFORMATION
  Report Type: 
  Country: None (occurrence: None)
  Receive Date: 20050823
  Receipt Date: 20050815
  Transmission Date: 20060218
  Serious: Yes (Hospitalization)
  Sender: FDA-Public Use
  Company Number: US-MERCK-0508USA02527

PATIENT
  Age: 35 Year
  Sex: Female

DRUGS (1)
  1. SINGULAIR [Suspect]
     Indication: HYPERSENSITIVITY
     Route: 048
     Dates: start: 20030101, end: 20030101

REACTIONS (3)
  - CHEST PAIN [None]
  - HEADACHE [None]
  - UPPER RESPIRATORY TRACT INFECTION [None]
